FAERS Safety Report 8135251 (Version 2)
Quarter: 2018Q1

REPORT INFORMATION
  Report Type: Spontaneous
  Country: US (occurrence: US)
  Receive Date: 20110914
  Receipt Date: 20180111
  Transmission Date: 20180509
  Serious: No
  Sender: FDA-Public Use
  Company Number: US-BAYER-201030231NA

PATIENT
  Age: 22 Year
  Sex: Female

DRUGS (2)
  1. MIRENA [Suspect]
     Active Substance: LEVONORGESTREL
     Indication: CONTRACEPTION
     Dosage: 20 MCG/24HR, CONT
     Route: 015
     Dates: start: 200902
  2. MIRENA [Suspect]
     Active Substance: LEVONORGESTREL
     Indication: CONTRACEPTION
     Dosage: 20 MCG/24HR, CONT
     Route: 015
     Dates: start: 200710, end: 200802

REACTIONS (8)
  - Vaginal haemorrhage [None]
  - Fatigue [None]
  - Mood swings [None]
  - Decreased appetite [None]
  - Weight decreased [None]
  - Abnormal withdrawal bleeding [None]
  - Pain [None]
  - Breast enlargement [None]

NARRATIVE: CASE EVENT DATE: 201003
